FAERS Safety Report 20937505 (Version 1)
Quarter: 2022Q2

REPORT INFORMATION
  Report Type: Spontaneous
  Country: US (occurrence: US)
  Receive Date: 20220609
  Receipt Date: 20220609
  Transmission Date: 20220721
  Serious: No
  Sender: FDA-Public Use
  Company Number: US-SPECGX-T202101408

PATIENT
  Age: 39 Year
  Sex: Male
  Weight: 64.399 kg

DRUGS (9)
  1. ACETAMINOPHEN\HYDROCODONE [Interacting]
     Active Substance: ACETAMINOPHEN\HYDROCODONE
     Indication: Pain
     Dosage: THREE TO THREE AND A HALF TABLETS PER DAY
     Route: 048
  2. ACETAMINOPHEN\HYDROCODONE [Interacting]
     Active Substance: ACETAMINOPHEN\HYDROCODONE
     Dosage: THREE TO THREE AND A HALF TABLETS PER DAY
     Route: 048
  3. DESOXYN [Interacting]
     Active Substance: METHAMPHETAMINE HYDROCHLORIDE
     Indication: Narcolepsy
     Dosage: UNK
     Route: 065
  4. XYREM [Concomitant]
     Active Substance: SODIUM OXYBATE
     Indication: Product used for unknown indication
     Dosage: 4.5 MILLIGRAM, BID
     Route: 065
  5. BIKTARVY [Concomitant]
     Active Substance: BICTEGRAVIR SODIUM\EMTRICITABINE\TENOFOVIR ALAFENAMIDE FUMARATE
     Indication: Product used for unknown indication
     Dosage: ONCE A DAY
     Route: 065
  6. FAMOTIDINE [Concomitant]
     Active Substance: FAMOTIDINE
     Indication: Product used for unknown indication
     Dosage: UNK
     Route: 065
  7. CELEBREX [Concomitant]
     Active Substance: CELECOXIB
     Indication: Product used for unknown indication
     Dosage: UNK
     Route: 065
  8. ONDANSETRON [Concomitant]
     Active Substance: ONDANSETRON
     Indication: Product used for unknown indication
     Dosage: UNK
     Route: 065
  9. ALLEGRA [Concomitant]
     Active Substance: FEXOFENADINE HYDROCHLORIDE
     Indication: Sinusitis
     Dosage: UNK
     Route: 065

REACTIONS (5)
  - Migraine [Unknown]
  - Pyrexia [Unknown]
  - Drug interaction [Unknown]
  - Product quality issue [Unknown]
  - Therapeutic product effect variable [Unknown]

NARRATIVE: CASE EVENT DATE: 20210501
